FAERS Safety Report 7151118-4 (Version None)
Quarter: 2010Q4

REPORT INFORMATION
  Report Type: 
  Country: None (occurrence: None)
  Receive Date: 20101210
  Receipt Date: 20101130
  Transmission Date: 20110411
  Serious: Yes (Other)
  Sender: FDA-Public Use
  Company Number: IT-BRISTOL-MYERS SQUIBB COMPANY-15418007

PATIENT

DRUGS (1)
  1. ORENCIA [Suspect]

REACTIONS (1)
  - DEMYELINATION [None]
